FAERS Safety Report 6452837-5 (Version None)
Quarter: 2009Q4

REPORT INFORMATION
  Report Type: 
  Country: None (occurrence: None)
  Receive Date: 20091123
  Receipt Date: 20091123
  Transmission Date: 20100525
  Serious: Yes (Disabling, Other)
  Sender: FDA-Public Use
  Company Number: None

PATIENT
  Age: 77 Year
  Sex: Female
  Weight: 67.586 kg

DRUGS (1)
  1. WELCHOL [Suspect]
     Indication: HEPATIC STEATOSIS
     Dosage: 3 PER DAY MORN + NIGHT
     Dates: start: 20090401, end: 20091001

REACTIONS (11)
  - ASTHENIA [None]
  - CHILLS [None]
  - CONSTIPATION [None]
  - DEPRESSION [None]
  - DIZZINESS [None]
  - FALL [None]
  - HEART RATE INCREASED [None]
  - PRURITUS [None]
  - SYNCOPE [None]
  - TREMOR [None]
  - VISUAL IMPAIRMENT [None]
